FAERS Safety Report 4546704-1 (Version None)
Quarter: 2005Q1

REPORT INFORMATION
  Report Type: 
  Country: None (occurrence: None)
  Receive Date: 20050105
  Receipt Date: 20041222
  Transmission Date: 20050727
  Serious: Yes (Death, Other)
  Sender: FDA-Public Use
  Company Number: CN-2004-037080

PATIENT
  Age: 74 Year
  Sex: Male

DRUGS (1)
  1. ULTRAVIST 370 [Suspect]
     Indication: CORONARY ANGIOPLASTY
     Dosage: 150 ML, 1 DOSE, INTRA-ARTERIAL
     Route: 013
     Dates: start: 20041222, end: 20041222

REACTIONS (4)
  - BLOOD PRESSURE DECREASED [None]
  - CHILLS [None]
  - LARYNGEAL OEDEMA [None]
  - THERAPY NON-RESPONDER [None]
